FAERS Safety Report 8492277-0 (Version None)
Quarter: 2012Q3

REPORT INFORMATION
  Report Type: 
  Country: None (occurrence: None)
  Receive Date: 20120706
  Receipt Date: 20120628
  Transmission Date: 20120928
  Serious: Yes (Other)
  Sender: FDA-Public Use
  Company Number: JP-ABBOTT-12P-087-0952689-00

PATIENT
  Sex: Male
  Weight: 59 kg

DRUGS (7)
  1. ALFACALCIDOL [Concomitant]
     Indication: CROHN'S DISEASE
     Route: 048
  2. HERBAL MEDICINE (DAIKENCHUTO) [Concomitant]
     Indication: CROHN'S DISEASE
     Dosage: 7.8 G X 3
  3. MESALAMINE [Concomitant]
     Indication: CROHN'S DISEASE
  4. LACTOMIN [Concomitant]
     Indication: CROHN'S DISEASE
  5. TPN [Concomitant]
     Indication: CROHN'S DISEASE
     Dosage: 80 G X 3
  6. HUMIRA [Suspect]
     Indication: CROHN'S DISEASE
     Route: 058
     Dates: start: 20120615, end: 20120615
  7. PREDNISOLONE [Concomitant]
     Indication: CROHN'S DISEASE

REACTIONS (2)
  - BLOOD PRESSURE DECREASED [None]
  - HYPERHIDROSIS [None]
